FAERS Safety Report 5211349-7 (Version None)
Quarter: 2007Q1

REPORT INFORMATION
  Report Type: 
  Country: None (occurrence: None)
  Receive Date: 20070111
  Receipt Date: 20070105
  Transmission Date: 20070707
  Serious: Yes (Hospitalization)
  Sender: FDA-Public Use
  Company Number: 163-20785-05080314

PATIENT
  Age: 51 Year
  Sex: Male

DRUGS (5)
  1. THALOMID [Suspect]
     Indication: MULTIPLE MYELOMA
     Dosage: 100 MG, 1 IN 1 D, ORAL; 50 MG, 1 IN 1 D, ORAL
     Route: 048
     Dates: start: 20050601, end: 20050701
  2. THALOMID [Suspect]
     Indication: MULTIPLE MYELOMA
     Dosage: 100 MG, 1 IN 1 D, ORAL; 50 MG, 1 IN 1 D, ORAL
     Route: 048
     Dates: start: 20050713, end: 20050801
  3. THALOMID [Suspect]
  4. DECADRON [Suspect]
     Indication: DRUG USE FOR UNKNOWN INDICATION
  5. COUMADIN (WARFARIN SODIUM)Q [Concomitant]

REACTIONS (5)
  - COAGULOPATHY [None]
  - DISEASE PROGRESSION [None]
  - INTERNATIONAL NORMALISED RATIO INCREASED [None]
  - LOSS OF CONSCIOUSNESS [None]
  - PNEUMONIA [None]
